FAERS Safety Report 25407002 (Version 1)
Quarter: 2025Q2

REPORT INFORMATION
  Report Type: Spontaneous
  Country: US (occurrence: US)
  Receive Date: 20250606
  Receipt Date: 20250606
  Transmission Date: 20250717
  Serious: No
  Sender: INCYTE
  Company Number: US-EVENT-002961

PATIENT
  Age: 47 Year

DRUGS (1)
  1. OPZELURA [Suspect]
     Active Substance: RUXOLITINIB PHOSPHATE
     Indication: Psoriasis
     Dosage: UNK, BID

REACTIONS (3)
  - Product packaging quantity issue [Unknown]
  - Intentional product use issue [Unknown]
  - Off label use [Unknown]
